FAERS Safety Report 18691029 (Version 1)
Quarter: 2021Q1

REPORT INFORMATION
  Report Type: Report from Study
  Country: US (occurrence: US)
  Receive Date: 20210101
  Receipt Date: 20210101
  Transmission Date: 20210419
  Serious: Yes (Hospitalization, Other)
  Sender: FDA-Public Use
  Company Number: NVSC2020US340883

PATIENT
  Age: 59 Year
  Sex: Female

DRUGS (2)
  1. ENTRESTO [Suspect]
     Active Substance: SACUBITRIL\VALSARTAN
     Indication: CARDIAC FAILURE
     Dosage: UNK UNK, BID
     Route: 048
     Dates: start: 201912
  2. COREG [Concomitant]
     Active Substance: CARVEDILOL
     Indication: PRODUCT USED FOR UNKNOWN INDICATION
     Dosage: (ON AND OFF OF COREG SINCE DECEMBER 2019 11)
     Route: 065

REACTIONS (14)
  - Pyrexia [Unknown]
  - Back pain [Unknown]
  - Fall [Unknown]
  - Upper limb fracture [Unknown]
  - Kidney infection [Unknown]
  - Depressed mood [Unknown]
  - Cough [Unknown]
  - Lower limb fracture [Unknown]
  - Arrhythmia [Unknown]
  - Ageusia [Unknown]
  - Dyspnoea [Unknown]
  - Malaise [Unknown]
  - Hypotension [Unknown]
  - Dysgeusia [Unknown]

NARRATIVE: CASE EVENT DATE: 201912
